FAERS Safety Report 6854067-1 (Version None)
Quarter: 2010Q3

REPORT INFORMATION
  Report Type: 
  Country: None (occurrence: None)
  Receive Date: 20100717
  Receipt Date: 20071227
  Transmission Date: 20110219
  Serious: No
  Sender: FDA-Public Use
  Company Number: US-PFIZER INC-2008000646

PATIENT
  Sex: Female

DRUGS (3)
  1. CHANTIX [Suspect]
     Indication: SMOKING CESSATION THERAPY
     Route: 048
     Dates: start: 20071215
  2. CILEST [Concomitant]
  3. TRAZODONE HYDROCHLORIDE [Concomitant]

REACTIONS (2)
  - NAUSEA [None]
  - VOMITING [None]
